FAERS Safety Report 12830862 (Version 1)
Quarter: 2016Q4

REPORT INFORMATION
  Report Type: Spontaneous
  Country: US (occurrence: US)
  Receive Date: 20161007
  Receipt Date: 20161007
  Transmission Date: 20170207
  Serious: Yes (Other)
  Sender: FDA-Public Use
  Company Number: US-BAUSCH-BL-2016-024707

PATIENT
  Age: 85 Year
  Sex: Female

DRUGS (6)
  1. 50 MG/ML 5-FLUOROURACIL SOLUTION [Suspect]
     Active Substance: FLUOROURACIL
     Indication: PRODUCT USED FOR UNKNOWN INDICATION
     Dosage: SOLUTION FOR INJECTION
     Route: 065
  2. PREDNISOLONE. [Concomitant]
     Active Substance: PREDNISOLONE
     Indication: HYPOPYON
     Route: 061
  3. VANCOMYCIN [Concomitant]
     Active Substance: VANCOMYCIN
     Indication: INFECTION
     Dosage: INTRAVITREAL
  4. PREDNISOLONE ACETATE. [Concomitant]
     Active Substance: PREDNISOLONE ACETATE
     Indication: HYPOPYON
     Dosage: INTRAVITREAL
  5. 50 MG/ML 5-FLUOROURACIL SOLUTION [Suspect]
     Active Substance: FLUOROURACIL
     Dosage: 0.1 ML, INTRACAMERAL
     Route: 065
  6. AMIKACIN [Concomitant]
     Active Substance: AMIKACIN
     Indication: INFECTION

REACTIONS (1)
  - Corneal opacity [Unknown]
